FAERS Safety Report 5117694-8 (Version None)
Quarter: 2006Q3

REPORT INFORMATION
  Report Type: 
  Country: None (occurrence: None)
  Receive Date: 20060926
  Receipt Date: 20060915
  Transmission Date: 20061208
  Serious: Yes (Hospitalization)
  Sender: FDA-Public Use
  Company Number: FR200609004313

PATIENT
  Age: 60 Year
  Sex: Male

DRUGS (1)
  1. PEMETREXED (PEMETREXED) [Suspect]
     Dosage: 500 MG/M2, OTHER, INRAVENOUS
     Route: 042
     Dates: start: 20060530, end: 20060719

REACTIONS (6)
  - ACUTE RESPIRATORY FAILURE [None]
  - CATHETER SITE PHLEBITIS [None]
  - PERICARDITIS [None]
  - PNEUMONITIS [None]
  - RASH GENERALISED [None]
  - RECALL PHENOMENON [None]
